FAERS Safety Report 4999808-3 (Version None)
Quarter: 2006Q2

REPORT INFORMATION
  Report Type: 
  Country: None (occurrence: None)
  Receive Date: 20060509
  Receipt Date: 20060424
  Transmission Date: 20061013
  Serious: Yes (Other)
  Sender: FDA-Public Use
  Company Number: 2006BH008687

PATIENT
  Age: 32 Year
  Weight: 130 kg

DRUGS (1)
  1. HEPARIN SODIUM [Suspect]
     Indication: CONVULSION
     Dosage: CONTINUOUS;

REACTIONS (3)
  - DEEP VEIN THROMBOSIS [None]
  - HEPARIN-INDUCED THROMBOCYTOPENIA [None]
  - PULMONARY EMBOLISM [None]
